FAERS Safety Report 9891259 (Version 2)
Quarter: 2014Q1

REPORT INFORMATION
  Report Type: Spontaneous
  Country: FR (occurrence: FR)
  Receive Date: 20140212
  Receipt Date: 20140212
  Transmission Date: 20141002
  Serious: Yes (Hospitalization)
  Sender: FDA-Public Use
  Company Number: FR-PFIZER INC-2013314672

PATIENT
  Age: 64 Year
  Sex: Male

DRUGS (6)
  1. TAZOCILLINE [Suspect]
     Dosage: UNK
     Dates: start: 20090919, end: 20130923
  2. CEFOTAXIME [Suspect]
     Indication: SEPTIC SHOCK
     Dosage: UNK
     Route: 042
     Dates: start: 20130915, end: 20130928
  3. LASILIX [Suspect]
     Dosage: UNK
     Route: 042
     Dates: start: 20130917, end: 20130918
  4. CORDARONE [Suspect]
     Indication: ATRIAL FIBRILLATION
     Dosage: UNK
     Route: 042
     Dates: start: 20130916, end: 20130923
  5. ERYTHROCINE [Suspect]
     Dosage: 1 G, EVERY 3 DAYS
     Route: 042
     Dates: start: 20130915, end: 20130918
  6. CEFEPIME [Concomitant]

REACTIONS (1)
  - Acute generalised exanthematous pustulosis [Recovered/Resolved]
